FAERS Safety Report 12883060 (Version 1)
Quarter: 2016Q4

REPORT INFORMATION
  Report Type: Spontaneous
  Country: TR (occurrence: TR)
  Receive Date: 20161025
  Receipt Date: 20161025
  Transmission Date: 20170207
  Serious: Yes (Death, Other)
  Sender: FDA-Public Use
  Company Number: TR-IPSEN BIOPHARMACEUTICALS, INC.-2016-08714

PATIENT
  Age: 80 Year
  Sex: Female

DRUGS (2)
  1. BOTULINUM TOXIN TYPE A NOS [Suspect]
     Active Substance: BOTULINUM TOXIN TYPE A
     Indication: OROMANDIBULAR DYSTONIA
     Dosage: 20 IU
     Route: 030
  2. BOTULINUM TOXIN TYPE A NOS [Suspect]
     Active Substance: BOTULINUM TOXIN TYPE A
     Indication: PRODUCT USE ISSUE

REACTIONS (2)
  - Myasthenia gravis [Recovering/Resolving]
  - Acute myocardial infarction [Fatal]
